FAERS Safety Report 4640246-0 (Version None)
Quarter: 2005Q2

REPORT INFORMATION
  Report Type: 
  Country: None (occurrence: None)
  Receive Date: 20050420
  Receipt Date: 20040301
  Transmission Date: 20051028
  Serious: Yes (Hospitalization, Other)
  Sender: FDA-Public Use
  Company Number: US-GLAXOSMITHKLINE-A0502021A

PATIENT
  Age: 9 Year
  Sex: Female
  Weight: 40 kg

DRUGS (3)
  1. PAXIL [Suspect]
     Indication: OBSESSIVE-COMPULSIVE DISORDER
     Dosage: 30MG PER DAY
     Route: 048
     Dates: start: 20021101, end: 20030901
  2. ZOLOFT [Suspect]
     Indication: OBSESSIVE-COMPULSIVE DISORDER
     Dosage: 25MG THREE TIMES PER DAY
     Route: 048
     Dates: start: 20021001, end: 20021101
  3. ZYPREXA [Suspect]

REACTIONS (21)
  - ABNORMAL BEHAVIOUR [None]
  - AGGRESSION [None]
  - AGITATION [None]
  - ANGER [None]
  - ANOREXIA [None]
  - ARRHYTHMIA [None]
  - BRADYCARDIA [None]
  - COGNITIVE DISORDER [None]
  - DEPRESSION [None]
  - DYSTONIA [None]
  - EYE ROLLING [None]
  - FEAR [None]
  - MOOD SWINGS [None]
  - MYALGIA [None]
  - NIGHTMARE [None]
  - PAIN IN EXTREMITY [None]
  - SELF MUTILATION [None]
  - SUICIDAL IDEATION [None]
  - SUICIDE ATTEMPT [None]
  - SWOLLEN TONGUE [None]
  - TACHYCARDIA [None]
